FAERS Safety Report 5478337-7 (Version None)
Quarter: 2007Q4

REPORT INFORMATION
  Report Type: 
  Country: None (occurrence: None)
  Receive Date: 20071005
  Receipt Date: 20071001
  Transmission Date: 20080405
  Serious: Yes (Hospitalization, Disabling)
  Sender: FDA-Public Use
  Company Number: A0671179A

PATIENT
  Age: 72 Year
  Sex: Male

DRUGS (10)
  1. ARIXTRA [Suspect]
     Route: 058
     Dates: start: 20070801
  2. ISOSORBIDE MONONITRATE [Concomitant]
     Route: 048
  3. CANDESARTAN CILEXETIL [Concomitant]
     Route: 048
  4. NORVASC [Concomitant]
     Route: 048
  5. AMBIEN [Concomitant]
     Indication: SLEEP DISORDER
     Route: 048
  6. KEFLEX [Concomitant]
     Indication: SYSTEMIC ANTIBACTERIAL THERAPY
     Route: 048
  7. TYLOX [Concomitant]
     Indication: PAIN
     Route: 048
  8. VICODIN [Concomitant]
     Indication: PAIN
     Route: 048
  9. BENADRYL [Concomitant]
     Indication: RASH
     Route: 042
  10. DARVOCET-N 100 [Concomitant]
     Indication: PAIN
     Route: 048

REACTIONS (11)
  - FAECAL INCONTINENCE [None]
  - HYPOAESTHESIA [None]
  - MONOPLEGIA [None]
  - MUSCULAR WEAKNESS [None]
  - PARAESTHESIA [None]
  - RENAL CYST [None]
  - SCOLIOSIS [None]
  - SPINAL DISORDER [None]
  - SPINAL EPIDURAL HAEMORRHAGE [None]
  - SPINAL HAEMATOMA [None]
  - URINARY INCONTINENCE [None]
